FAERS Safety Report 6279518-5 (Version None)
Quarter: 2009Q3

REPORT INFORMATION
  Report Type: 
  Country: None (occurrence: None)
  Receive Date: 20090723
  Receipt Date: 20090714
  Transmission Date: 20100115
  Serious: Yes (Other)
  Sender: FDA-Public Use
  Company Number: US-JNJFOC-20090704487

PATIENT
  Sex: Male
  Weight: 76.2 kg

DRUGS (6)
  1. REMICADE [Suspect]
     Route: 042
  2. REMICADE [Suspect]
     Indication: CROHN'S DISEASE
     Route: 042
  3. ADDERALL 10 [Concomitant]
     Indication: ATTENTION DEFICIT/HYPERACTIVITY DISORDER
  4. CANASA [Concomitant]
     Route: 054
  5. PAXIL [Concomitant]
     Indication: DEPRESSION
  6. ALBUTEROL [Concomitant]
     Indication: ASTHMA

REACTIONS (1)
  - TESTIS CANCER [None]
